FAERS Safety Report 6654079-7 (Version None)
Quarter: 2010Q1

REPORT INFORMATION
  Report Type: 
  Country: None (occurrence: None)
  Receive Date: 20100326
  Receipt Date: 20100317
  Transmission Date: 20100710
  Serious: Yes (Other)
  Sender: FDA-Public Use
  Company Number: PHHY2010ZA16594

PATIENT
  Sex: Female

DRUGS (1)
  1. TAREG [Suspect]

REACTIONS (4)
  - BLOOD PRESSURE ABNORMAL [None]
  - DIZZINESS [None]
  - HEADACHE [None]
  - NEUROPATHY PERIPHERAL [None]
